FAERS Safety Report 11036350 (Version 1)
Quarter: 2015Q2

REPORT INFORMATION
  Report Type: Spontaneous
  Country: FR (occurrence: FR)
  Receive Date: 20150415
  Receipt Date: 20150415
  Transmission Date: 20150821
  Serious: Yes (Hospitalization)
  Sender: FDA-Public Use
  Company Number: FR-ROCHE-1562721

PATIENT
  Age: 83 Year
  Sex: Female

DRUGS (16)
  1. AMLOR [Concomitant]
     Active Substance: AMLODIPINE BESYLATE
  2. ATARAX [Concomitant]
     Active Substance: HYDROXYZINE\HYDROXYZINE HYDROCHLORIDE
  3. ROCEPHINE [Suspect]
     Active Substance: CEFTRIAXONE SODIUM
     Indication: PYREXIA
  4. OXEOL [Concomitant]
  5. EUPANTOL [Concomitant]
     Active Substance: PANTOPRAZOLE SODIUM
  6. COUMADINE [Concomitant]
     Active Substance: WARFARIN SODIUM
  7. KARDEGIC [Concomitant]
     Active Substance: ASPIRIN LYSINE
  8. LASILIX [Concomitant]
     Active Substance: FUROSEMIDE
  9. LEVOTHYROX [Concomitant]
     Active Substance: LEVOTHYROXINE
  10. PROCORALAN [Concomitant]
     Active Substance: IVABRADINE
  11. TRINITRINE [Concomitant]
     Active Substance: NITROGLYCERIN
  12. DIFFU K [Concomitant]
     Active Substance: POTASSIUM CHLORIDE
  13. ROCEPHINE [Suspect]
     Active Substance: CEFTRIAXONE SODIUM
     Indication: COUGH
     Dosage: THERAPY START DATE : 05/JAN/2015
     Route: 065
  14. ROCEPHINE [Suspect]
     Active Substance: CEFTRIAXONE SODIUM
     Indication: DYSPNOEA
  15. SINGULAIR [Concomitant]
     Active Substance: MONTELUKAST SODIUM
  16. SERETIDE [Concomitant]
     Active Substance: FLUTICASONE FUROATE\SALMETEROL XINAFOATE

REACTIONS (2)
  - Diarrhoea [Recovered/Resolved]
  - Gastrointestinal disorder [Recovered/Resolved]

NARRATIVE: CASE EVENT DATE: 201501
